FAERS Safety Report 18388282 (Version 2)
Quarter: 2020Q4

REPORT INFORMATION
  Report Type: Spontaneous
  Country: US (occurrence: US)
  Receive Date: 20201015
  Receipt Date: 20201030
  Transmission Date: 20210114
  Serious: No
  Sender: FDA-Public Use
  Company Number: US-UNITED THERAPEUTICS-UNT-2020-015556

PATIENT
  Sex: Female

DRUGS (2)
  1. REMODULIN [Suspect]
     Active Substance: TREPROSTINIL
     Indication: PULMONARY ARTERIAL HYPERTENSION
     Dosage: UNK, CONTINUING
     Route: 058
     Dates: start: 20171109
  2. REMODULIN [Suspect]
     Active Substance: TREPROSTINIL
     Dosage: 0.06 ?G/KG, CONTINUING (AT PUMP RATE OF 0.022)
     Route: 058

REACTIONS (4)
  - Headache [Recovering/Resolving]
  - Nausea [Recovering/Resolving]
  - Dyspepsia [Recovering/Resolving]
  - Diarrhoea [Recovering/Resolving]
